FAERS Safety Report 9945847 (Version 1)
Quarter: 2014Q1

REPORT INFORMATION
  Report Type: Report from Study
  Country: US (occurrence: US)
  Receive Date: 20140303
  Receipt Date: 20140303
  Transmission Date: 20141002
  Serious: No
  Sender: FDA-Public Use
  Company Number: US-ABBVIE-13P-163-1050827-00

PATIENT
  Age: 57 Year
  Sex: Female

DRUGS (10)
  1. HUMIRA [Suspect]
     Indication: CROHN^S DISEASE
     Dosage: ON 22 JAN 2013
     Dates: start: 20120918
  2. HUMIRA [Suspect]
     Dates: start: 20130205
  3. HUMIRA [Suspect]
     Dates: start: 20130219
  4. CYMBALTA [Concomitant]
     Indication: DEPRESSION
  5. NEXIUM [Concomitant]
     Indication: GASTROOESOPHAGEAL REFLUX DISEASE
  6. ENTOCORT [Concomitant]
     Indication: CROHN^S DISEASE
  7. IMITREX [Concomitant]
     Indication: MIGRAINE
  8. MAX AIR [Concomitant]
     Indication: ASTHMA
     Dosage: INHALER
  9. TYLENOL [Concomitant]
     Indication: PAIN
  10. VITAMIN D [Concomitant]
     Indication: VITAMIN D DECREASED
     Dosage: EVERY TUESDAY, THURSDAY AND FRIDAY
     Dates: start: 2013

REACTIONS (3)
  - Alopecia [Not Recovered/Not Resolved]
  - Injection site pain [Not Recovered/Not Resolved]
  - Fatigue [Not Recovered/Not Resolved]
